FAERS Safety Report 11167090 (Version 2)
Quarter: 2015Q2

REPORT INFORMATION
  Report Type: Spontaneous
  Country: DE (occurrence: DE)
  Receive Date: 20150605
  Receipt Date: 20150612
  Transmission Date: 20150821
  Serious: Yes (Other)
  Sender: FDA-Public Use
  Company Number: DE-SUN PHARMACEUTICAL INDUSTRIES LTD-2015RR-98396

PATIENT

DRUGS (6)
  1. NOVAMINSULFON 500 MG [Suspect]
     Active Substance: METAMIZOLE
     Indication: HERPES ZOSTER
     Dosage: 4 DF, DAILY, 1 TABLET EVERY 6 HOURS
     Route: 065
  2. TELMISARTAN. [Concomitant]
     Active Substance: TELMISARTAN
     Indication: PRODUCT USED FOR UNKNOWN INDICATION
     Dosage: UNK
     Route: 065
  3. ANAESTHESULF LOTION [Suspect]
     Active Substance: POLIDOCANOL
     Indication: HERPES ZOSTER
     Dosage: UNK
     Route: 065
  4. MARCUMAR [Concomitant]
     Active Substance: PHENPROCOUMON
     Indication: PRODUCT USED FOR UNKNOWN INDICATION
     Dosage: UNK
     Route: 065
  5. ACICLO BASICS 800 MG [Suspect]
     Active Substance: ACYCLOVIR
     Indication: HERPES ZOSTER
     Dosage: 5 DF, DAILY, 1 TABLET EVERY 6 HOURS
     Route: 065
  6. SIMVA BASICS [Concomitant]
     Indication: PRODUCT USED FOR UNKNOWN INDICATION
     Dosage: UNK
     Route: 065

REACTIONS (1)
  - International normalised ratio increased [Recovered/Resolved]

NARRATIVE: CASE EVENT DATE: 201505
